FAERS Safety Report 8484004-8 (Version None)
Quarter: 2012Q3

REPORT INFORMATION
  Report Type: 
  Country: None (occurrence: None)
  Receive Date: 20120703
  Receipt Date: 20120629
  Transmission Date: 20120928
  Serious: No
  Sender: FDA-Public Use
  Company Number: US-PFIZER INC-2012157050

PATIENT
  Sex: Female

DRUGS (2)
  1. NEURONTIN [Suspect]
     Indication: NEUROPATHY PERIPHERAL
     Dosage: UNK
     Dates: start: 20120101
  2. IXEMPRA KIT [Suspect]
     Indication: OVARIAN CANCER
     Dosage: 37 UNK, WEEKLY
     Route: 042
     Dates: start: 20120301

REACTIONS (1)
  - DRUG INEFFECTIVE [None]
